FAERS Safety Report 12845427 (Version 1)
Quarter: 2016Q4

REPORT INFORMATION
  Report Type: Spontaneous
  Country: US (occurrence: US)
  Receive Date: 20161013
  Receipt Date: 20161013
  Transmission Date: 20170207
  Serious: No
  Sender: FDA-Public Use
  Company Number: US-JAZZ-2016-US-013590

PATIENT
  Sex: Female

DRUGS (15)
  1. SEROQUEL [Concomitant]
     Active Substance: QUETIAPINE FUMARATE
  2. TRAMADOL HCL [Concomitant]
     Active Substance: TRAMADOL HYDROCHLORIDE
  3. LASIX [Concomitant]
     Active Substance: FUROSEMIDE
  4. MAGNESIUM OXIDE. [Concomitant]
     Active Substance: MAGNESIUM OXIDE
  5. XYREM [Suspect]
     Active Substance: SODIUM OXYBATE
     Indication: NARCOLEPSY
     Dosage: 2.25 G, BID
     Route: 048
     Dates: start: 201510, end: 201511
  6. SLIMFAST [Concomitant]
     Active Substance: DIETARY SUPPLEMENT
  7. XYREM [Suspect]
     Active Substance: SODIUM OXYBATE
     Dosage: 4.5 G, BID
     Route: 048
     Dates: start: 201511
  8. KLONOPIN [Concomitant]
     Active Substance: CLONAZEPAM
  9. IBUPROFEN. [Concomitant]
     Active Substance: IBUPROFEN
  10. METOPROLOL SUCCINATE. [Concomitant]
     Active Substance: METOPROLOL SUCCINATE
  11. DOXEPIN [Concomitant]
     Active Substance: DOXEPIN
  12. ACETAMINOPHEN. [Concomitant]
     Active Substance: ACETAMINOPHEN
  13. EPIPEN [Concomitant]
     Active Substance: EPINEPHRINE
  14. POTASSIUM CHLORIDE. [Concomitant]
     Active Substance: POTASSIUM CHLORIDE
  15. PRAVASTATIN SODIUM. [Concomitant]
     Active Substance: PRAVASTATIN SODIUM

REACTIONS (1)
  - Sinusitis [Unknown]
